FAERS Safety Report 7017064-1 (Version None)
Quarter: 2010Q3

REPORT INFORMATION
  Report Type: 
  Country: None (occurrence: None)
  Receive Date: 20100927
  Receipt Date: 20100917
  Transmission Date: 20110219
  Serious: No
  Sender: FDA-Public Use
  Company Number: US-PFIZER INC-2010118962

PATIENT
  Sex: Male
  Weight: 109.75 kg

DRUGS (1)
  1. NEURONTIN [Suspect]
     Indication: NEUROPATHY PERIPHERAL
     Dosage: 200 MG, 1X/DAY
     Route: 048
     Dates: start: 20100901

REACTIONS (4)
  - CONFUSIONAL STATE [None]
  - DIZZINESS [None]
  - EJACULATION FAILURE [None]
  - LOSS OF LIBIDO [None]
